FAERS Safety Report 8078812-5 (Version None)
Quarter: 2012Q1

REPORT INFORMATION
  Report Type: 
  Country: None (occurrence: None)
  Receive Date: 20120124
  Receipt Date: 20120112
  Transmission Date: 20120608
  Serious: Yes (Hospitalization)
  Sender: FDA-Public Use
  Company Number: DSA_48890_2012

PATIENT
  Age: 18 Year
  Sex: Female

DRUGS (4)
  1. DIURETICS (DIURETIC) [Suspect]
     Indication: HYPERTENSION
     Dosage: (DF)
  2. ENALAPRIL MALEATE [Suspect]
     Indication: HYPERTENSION
     Dosage: (DF ORAL)
     Route: 048
  3. CARVEDILOL [Suspect]
     Indication: HYPERTENSION
     Dosage: (DF ORAL)
     Route: 048
  4. AMLODIPINE [Suspect]
     Indication: HYPERTENSION
     Dosage: (DF)

REACTIONS (5)
  - BLOOD ALDOSTERONE INCREASED [None]
  - DRUG INEFFECTIVE [None]
  - NO THERAPEUTIC RESPONSE [None]
  - HEADACHE [None]
  - RENIN INCREASED [None]
